FAERS Safety Report 9834704 (Version 10)
Quarter: 2015Q1

REPORT INFORMATION
  Report Type: Report from Study
  Country: FR (occurrence: FR)
  Receive Date: 20140122
  Receipt Date: 20150310
  Transmission Date: 20150721
  Serious: Yes (Hospitalization, Other)
  Sender: FDA-Public Use
  Company Number: FR-ROCHE-1310490

PATIENT
  Age: 73 Year
  Sex: Male
  Weight: 55 kg

DRUGS (18)
  1. CLOPIDOGREL [Concomitant]
     Active Substance: CLOPIDOGREL BISULFATE
     Indication: ARTERIAL DISORDER
     Route: 065
     Dates: start: 20110401
  2. AUGMENTIN [Concomitant]
     Active Substance: AMOXICILLIN\CLAVULANATE POTASSIUM
     Indication: PNEUMONIA BACTERIAL
     Dosage: AUGMENTIN BRAND.
     Route: 065
     Dates: start: 20130427, end: 20130508
  3. VISMODEGIB [Suspect]
     Active Substance: VISMODEGIB
     Indication: BASAL CELL CARCINOMA
     Dosage: LAST DOSE PRIOR TO INVASIVE SQUAMOUS CELL CARCINOMA: 07/NOV/2013.?LAST DOSE PRIOR TO SERIOUS EVENT O
     Route: 048
     Dates: start: 20121109
  4. PARACETAMOL [Concomitant]
     Active Substance: ACETAMINOPHEN
     Indication: PAIN PROPHYLAXIS
     Route: 065
     Dates: start: 20121109
  5. KARDEGIC [Concomitant]
     Active Substance: ASPIRIN LYSINE
     Dosage: TOTAL DAILY DOSE: 75MM/J.
     Route: 065
     Dates: start: 20130427
  6. ROCEPHINE [Concomitant]
     Active Substance: CEFTRIAXONE SODIUM
     Indication: PNEUMONIA BACTERIAL
     Route: 065
     Dates: start: 20130508, end: 20130521
  7. IMODIUM [Concomitant]
     Active Substance: LOPERAMIDE HYDROCHLORIDE
     Route: 065
     Dates: start: 20130221, end: 20130221
  8. IMODIUM [Concomitant]
     Active Substance: LOPERAMIDE HYDROCHLORIDE
     Route: 065
     Dates: start: 20140107, end: 20140108
  9. CLOPIDOGREL [Concomitant]
     Active Substance: CLOPIDOGREL BISULFATE
     Dosage: PLAVIX BRAND.
     Route: 065
     Dates: start: 20110401, end: 20110426
  10. TAVANIC [Concomitant]
     Active Substance: LEVOFLOXACIN
     Indication: PNEUMONIA BACTERIAL
     Route: 065
     Dates: start: 20130508, end: 20130521
  11. LAMICTAL [Concomitant]
     Active Substance: LAMOTRIGINE
     Indication: EPILEPSY
     Route: 065
     Dates: start: 20130517, end: 20130520
  12. LEXOMIL [Concomitant]
     Active Substance: BROMAZEPAM
     Indication: ANXIETY
     Route: 065
     Dates: start: 20131106, end: 20131107
  13. SMECTA [Concomitant]
     Active Substance: MONTMORILLONITE
     Indication: DIARRHOEA
     Route: 065
     Dates: start: 20130221, end: 20130221
  14. IMODIUM [Concomitant]
     Active Substance: LOPERAMIDE HYDROCHLORIDE
     Indication: DIARRHOEA
     Route: 065
     Dates: start: 20130401, end: 20130402
  15. LEXOMIL [Concomitant]
     Active Substance: BROMAZEPAM
     Route: 065
     Dates: start: 20140313, end: 20140325
  16. LEXOMIL [Concomitant]
     Active Substance: BROMAZEPAM
     Route: 065
     Dates: start: 20140326
  17. IMODIUM [Concomitant]
     Active Substance: LOPERAMIDE HYDROCHLORIDE
     Route: 065
     Dates: start: 20130524, end: 20130528
  18. LAMICTAL [Concomitant]
     Active Substance: LAMOTRIGINE
     Indication: PARAESTHESIA
     Route: 065
     Dates: start: 20130521

REACTIONS (2)
  - Benign neoplasm of adrenal gland [Recovered/Resolved with Sequelae]
  - Squamous cell carcinoma [Recovered/Resolved]

NARRATIVE: CASE EVENT DATE: 20131107
